FAERS Safety Report 23631603 (Version 1)
Quarter: 2024Q1

REPORT INFORMATION
  Report Type: Spontaneous
  Country: US (occurrence: US)
  Receive Date: 20240314
  Receipt Date: 20240314
  Transmission Date: 20240410
  Serious: Yes (Other)
  Sender: FDA-Public Use
  Company Number: US-APOTEX-2024AP003303

PATIENT
  Age: 29 Year
  Sex: Female

DRUGS (1)
  1. SIROLIMUS [Suspect]
     Active Substance: SIROLIMUS
     Indication: Immunosuppression
     Dosage: UNK
     Route: 065

REACTIONS (2)
  - Tuberculosis [Unknown]
  - Infectious pleural effusion [Unknown]
